FAERS Safety Report 12169262 (Version 1)
Quarter: 2016Q1

REPORT INFORMATION
  Report Type: Spontaneous
  Country: CH (occurrence: FR)
  Receive Date: 20160310
  Receipt Date: 20160310
  Transmission Date: 20160526
  Serious: Yes (Hospitalization)
  Sender: FDA-Public Use
  Company Number: CH-LPDUSPRD-20160202

PATIENT
  Age: 35 Year
  Sex: Female

DRUGS (7)
  1. MIRCERA [Suspect]
     Active Substance: METHOXY POLYETHYLENE GLYCOL-EPOETIN BETA
     Dosage: 1 MCG, 1 IN 1 M
     Route: 058
  2. ASPEGIC [Concomitant]
     Active Substance: ASPIRIN DL-LYSINE
     Dosage: 100 MG
     Route: 065
  3. VENOFER [Suspect]
     Active Substance: IRON SUCROSE
     Dosage: 1000 MG
     Route: 042
     Dates: start: 20160120, end: 20160120
  4. CELLCEPT [Concomitant]
     Active Substance: MYCOPHENOLATE MOFETIL\MYCOPHENOLATE MOFETIL HYDROCHLORIDE
     Dosage: 500 MG (250 MG, 2 IN 1 D)
     Route: 065
  5. ADVAGRAF [Concomitant]
     Active Substance: TACROLIMUS
     Dosage: 9 MG
     Route: 065
  6. TRIATEC [Concomitant]
     Active Substance: RAMIPRIL
     Dosage: 1.25 MG
     Route: 065
  7. CALCIDIA [Concomitant]
     Active Substance: CALCIUM POLYCARBOPHIL
     Dosage: 1.54 GM
     Route: 065

REACTIONS (10)
  - Tachycardia [Recovered/Resolved]
  - Presyncope [Unknown]
  - Loss of consciousness [Recovered/Resolved]
  - Vomiting [Recovered/Resolved]
  - Abdominal pain [Recovered/Resolved]
  - Hypotension [Recovered/Resolved]
  - Wrong drug administered [Unknown]
  - Overdose [Unknown]
  - Paraesthesia [Recovered/Resolved]
  - Skin discolouration [Unknown]

NARRATIVE: CASE EVENT DATE: 20160120
